FAERS Safety Report 15948010 (Version 1)
Quarter: 2019Q1

REPORT INFORMATION
  Report Type: Spontaneous
  Country: RU (occurrence: RU)
  Receive Date: 20190212
  Receipt Date: 20190212
  Transmission Date: 20190417
  Serious: Yes (Other)
  Sender: FDA-Public Use
  Company Number: RU-GLAXOSMITHKLINE-RU2019GSK022134

PATIENT
  Sex: Female
  Weight: 15 kg

DRUGS (1)
  1. ZINNAT [Suspect]
     Active Substance: CEFUROXIME AXETIL
     Indication: EAR INFECTION
     Dosage: UNK
     Route: 048
     Dates: start: 20181225

REACTIONS (3)
  - Candida infection [Not Recovered/Not Resolved]
  - Oropharyngeal plaque [Unknown]
  - Haemophilus infection [Not Recovered/Not Resolved]
